FAERS Safety Report 7220568-X (Version None)
Quarter: 2011Q1

REPORT INFORMATION
  Report Type: 
  Country: None (occurrence: None)
  Receive Date: 20110111
  Receipt Date: 20110105
  Transmission Date: 20110831
  Serious: Yes (Other)
  Sender: FDA-Public Use
  Company Number: US-JNJFOC-20110101150

PATIENT
  Sex: Male

DRUGS (5)
  1. REMICADE [Suspect]
     Indication: CROHN'S DISEASE
     Route: 042
  2. MERCAPTOPURINE [Concomitant]
  3. ROWASA [Concomitant]
     Dosage: PRN
  4. CANASA [Concomitant]
     Dosage: EVERY OTHER NIGHT
  5. REMICADE [Suspect]
     Route: 042

REACTIONS (1)
  - DYSPLASIA [None]
